FAERS Safety Report 9871063 (Version 1)
Quarter: 2014Q1

REPORT INFORMATION
  Report Type: Spontaneous
  Country: US (occurrence: None)
  Receive Date: 20140204
  Receipt Date: 20140204
  Transmission Date: 20141002
  Serious: Yes (Death)
  Sender: FDA-Public Use
  Company Number: None

PATIENT
  Age: 51 Year
  Sex: Female

DRUGS (4)
  1. TEMOZOLOMIDE [Suspect]
     Indication: SOFT TISSUE NEOPLASM
     Route: 048
     Dates: start: 20110823, end: 201401
  2. VOTRIENT [Concomitant]
  3. CALCIUM CHEWS [Concomitant]
  4. MULTVITAMIN [Concomitant]

REACTIONS (1)
  - Disease progression [None]
